FAERS Safety Report 6198134-7 (Version None)
Quarter: 2009Q2

REPORT INFORMATION
  Report Type: 
  Country: None (occurrence: None)
  Receive Date: 20090521
  Receipt Date: 20090414
  Transmission Date: 20091009
  Serious: Yes (Death)
  Sender: FDA-Public Use
  Company Number: GB-PFIZER INC-2009197351

PATIENT
  Age: 8 Month

DRUGS (6)
  1. METHOTREXATE SODIUM [Suspect]
     Indication: BONE MARROW TRANSPLANT
  2. CYCLOPHOSPHAMIDE [Suspect]
     Indication: BONE MARROW TRANSPLANT
  3. PREDNISOLONE AND PREDNISOLONE STEAGLATE [Suspect]
  4. CYCLOSPORINE [Suspect]
     Indication: BONE MARROW TRANSPLANT
  5. CYCLOSPORINE [Suspect]
     Indication: PROPHYLAXIS AGAINST GRAFT VERSUS HOST DISEASE
  6. BUSULPHAN [Suspect]

REACTIONS (1)
  - VENOOCCLUSIVE DISEASE [None]
